FAERS Safety Report 6697161-0 (Version None)
Quarter: 2010Q2

REPORT INFORMATION
  Report Type: 
  Country: None (occurrence: None)
  Receive Date: 20100422
  Receipt Date: 20100409
  Transmission Date: 20101027
  Serious: Yes (Other)
  Sender: FDA-Public Use
  Company Number: JPI-P-010274

PATIENT
  Age: 47 Year
  Sex: Female
  Weight: 62.5964 kg

DRUGS (6)
  1. XYREM [Suspect]
     Indication: FIBROMYALGIA
     Dosage: 2 IN 1 D, ORAL, 12.5 GM (6.25 GM, 2 IN 1 D), ORAL
     Route: 048
     Dates: start: 20050101
  2. VALSARTAN [Concomitant]
  3. T3T4 [Concomitant]
  4. CORTISOL [Concomitant]
  5. VENLAFAXINE [Concomitant]
  6. ZOLPIDEM TARTRATE [Concomitant]

REACTIONS (3)
  - CONDITION AGGRAVATED [None]
  - HAEMORRHAGE [None]
  - UTERINE LEIOMYOMA [None]
